FAERS Safety Report 20758582 (Version 1)
Quarter: 2022Q2

REPORT INFORMATION
  Report Type: Spontaneous
  Country: US (occurrence: US)
  Receive Date: 20220427
  Receipt Date: 20220427
  Transmission Date: 20220721
  Serious: No
  Sender: FDA-Public Use
  Company Number: US-PFIZER INC-202101273083

PATIENT
  Age: 57 Year
  Sex: Female
  Weight: 58.97 kg

DRUGS (2)
  1. GABAPENTIN [Suspect]
     Active Substance: GABAPENTIN
     Dosage: 1800 MG
  2. GABAPENTIN [Suspect]
     Active Substance: GABAPENTIN
     Dosage: 2400 MG

REACTIONS (6)
  - Drug ineffective [Unknown]
  - Off label use [Unknown]
  - Electric shock sensation [Unknown]
  - Pain in extremity [Unknown]
  - Hypoaesthesia [Unknown]
  - Gait disturbance [Unknown]
